FAERS Safety Report 24770309 (Version 2)
Quarter: 2025Q4

REPORT INFORMATION
  Report Type: Spontaneous
  Country: CN (occurrence: CN)
  Receive Date: 20241224
  Receipt Date: 20251023
  Transmission Date: 20260117
  Serious: Yes (Hospitalization, Other)
  Sender: GLAXOSMITHKLINE
  Company Number: CN-GSK-CN2024APC145405

PATIENT
  Age: 68 Year
  Sex: Female
  Weight: 55 kg

DRUGS (4)
  1. NUCALA [Suspect]
     Active Substance: MEPOLIZUMAB
     Indication: Eosinophilic granulomatosis with polyangiitis
     Dosage: 300 MG, Q4W
  2. NUCALA [Suspect]
     Active Substance: MEPOLIZUMAB
     Indication: Asthma
     Dosage: 100 MG, Q4W
  3. NUCALA [Suspect]
     Active Substance: MEPOLIZUMAB
     Dosage: 200 MG, MO
  4. SERETIDE [Suspect]
     Active Substance: FLUTICASONE PROPIONATE\SALMETEROL XINAFOATE
     Indication: Asthma
     Dosage: 1 DF, BID 60 DOSES

REACTIONS (27)
  - Asthma [Recovered/Resolved]
  - Pneumonia [Unknown]
  - Bronchostenosis [Unknown]
  - Tricuspid valve incompetence [Unknown]
  - Liver injury [Unknown]
  - Pneumonitis [Unknown]
  - Bronchitis [Unknown]
  - Atelectasis [Unknown]
  - Pulmonary mass [Unknown]
  - Chronic sinusitis [Unknown]
  - Nasal septum deviation [Unknown]
  - Arteriosclerosis [Unknown]
  - Hyperlipidaemia [Unknown]
  - Gastrooesophageal reflux disease [Unknown]
  - Faecal occult blood positive [Unknown]
  - Hepatic steatosis [Unknown]
  - Hepatic cyst [Unknown]
  - Urinary tract infection [Unknown]
  - Urticaria [Recovered/Resolved]
  - Chronic obstructive pulmonary disease [Unknown]
  - Gastric polyps [Unknown]
  - Lung consolidation [Unknown]
  - Treatment noncompliance [Unknown]
  - Drug ineffective [Recovered/Resolved]
  - Off label use [Unknown]
  - Intentional product misuse [Unknown]
  - Intentional product use issue [Unknown]
